FAERS Safety Report 9417843 (Version 1)
Quarter: 2013Q3

REPORT INFORMATION
  Report Type: Report from Study
  Country: US (occurrence: US)
  Receive Date: 20130724
  Receipt Date: 20130724
  Transmission Date: 20140515
  Serious: Yes (Hospitalization)
  Sender: FDA-Public Use
  Company Number: US-BRISTOL-MYERS SQUIBB COMPANY-19120377

PATIENT
  Age: 71 Year
  Sex: Male
  Weight: 131.52 kg

DRUGS (11)
  1. COUMADIN [Suspect]
     Indication: CEREBROVASCULAR ACCIDENT PROPHYLAXIS
     Dosage: STARTED ON UNK DATE AND STOPPED ON UNKN DATE. RESTARTED IN 2013
  2. XARELTO [Concomitant]
     Indication: CEREBROVASCULAR ACCIDENT PROPHYLAXIS
     Dosage: FILM COATED TABLETS
     Route: 048
     Dates: start: 20130110, end: 20130121
  3. LANTUS [Concomitant]
     Route: 058
     Dates: start: 2007
  4. NOVOLOG [Concomitant]
     Indication: DIABETES MELLITUS
     Route: 058
     Dates: start: 2007
  5. METFORMIN [Concomitant]
     Indication: DIABETES MELLITUS
     Dosage: TABLET
     Route: 048
     Dates: start: 2007
  6. FENOFIBRATE [Concomitant]
     Indication: DIABETES MELLITUS
     Dosage: TABLET
     Route: 048
     Dates: start: 2007
  7. AMLODIPINE [Concomitant]
     Indication: DIABETES MELLITUS
     Dosage: TABLET
     Route: 048
     Dates: start: 2007
  8. HYDROCHLOROTHIAZIDE [Concomitant]
     Indication: DIABETES MELLITUS
     Dosage: TABLET
     Route: 048
     Dates: start: 2007
  9. HYDROCHLOROTHIAZIDE [Concomitant]
     Indication: DIURETIC THERAPY
     Dosage: TABLET
     Route: 048
     Dates: start: 2007
  10. CRESTOR [Concomitant]
     Indication: BLOOD CHOLESTEROL
     Dosage: TABLET
     Route: 048
     Dates: start: 2007
  11. LOSARTAN [Concomitant]
     Indication: BLOOD PRESSURE
     Route: 048

REACTIONS (4)
  - Eye haemorrhage [Recovered/Resolved]
  - Gallbladder disorder [Recovered/Resolved]
  - Visual impairment [Recovered/Resolved]
  - Weight decreased [Not Recovered/Not Resolved]
